FAERS Safety Report 9690301 (Version 1)
Quarter: 2013Q4

REPORT INFORMATION
  Report Type: Spontaneous
  Country: US (occurrence: US)
  Receive Date: 20131115
  Receipt Date: 20131115
  Transmission Date: 20140711
  Serious: No
  Sender: FDA-Public Use
  Company Number: US-PFIZER INC-2013322600

PATIENT
  Age: 60 Year
  Sex: Female
  Weight: 58.96 kg

DRUGS (1)
  1. ADVIL [Suspect]
     Indication: ARTHRALGIA
     Dosage: 200 MG, FOUR TIMES A DAY
     Route: 048
     Dates: start: 201310, end: 201311

REACTIONS (1)
  - Drug ineffective [Unknown]
